FAERS Safety Report 5395642-3 (Version None)
Quarter: 2007Q3

REPORT INFORMATION
  Report Type: 
  Country: None (occurrence: None)
  Receive Date: 20070720
  Receipt Date: 20070705
  Transmission Date: 20080115
  Serious: Yes (Death)
  Sender: FDA-Public Use
  Company Number: 111106ISR

PATIENT
  Age: 40 Year
  Sex: Male

DRUGS (6)
  1. FLUOXETINE [Suspect]
     Indication: MAJOR DEPRESSION
     Dosage: 60 MG, ORAL
     Route: 048
     Dates: start: 20040401
  2. OLANZAPINE [Suspect]
     Indication: PSYCHOTIC DISORDER
     Dosage: 20 MG ORAL
     Route: 048
     Dates: start: 20040401
  3. ETHANOL [Suspect]
  4. DIAZEPAM [Concomitant]
  5. TEMAZEPAM [Concomitant]
  6. MIRTAZAPINE [Concomitant]

REACTIONS (7)
  - BLOOD ALCOHOL INCREASED [None]
  - COUGH [None]
  - DEPRESSED LEVEL OF CONSCIOUSNESS [None]
  - DRUG LEVEL INCREASED [None]
  - RESPIRATORY DEPRESSION [None]
  - SNEEZING [None]
  - SUDDEN DEATH [None]
